FAERS Safety Report 9068426 (Version 1)
Quarter: 2013Q1

REPORT INFORMATION
  Report Type: Spontaneous
  Country: US (occurrence: US)
  Receive Date: 20130128
  Receipt Date: 20130128
  Transmission Date: 20140127
  Serious: Yes (Death)
  Sender: FDA-Public Use
  Company Number: PHHY2013US006788

PATIENT
  Age: 31 Year
  Sex: Male

DRUGS (4)
  1. METOPROLOL [Suspect]
     Dosage: UNK UKN, UNK
  2. TRIAMTERENE + HYDROCHLOROTHIAZIDE [Suspect]
     Dosage: UNK UKN, UNK
  3. VERAPAMIL [Suspect]
     Dosage: UNK UKN, UNK
  4. METOCLOPRAMIDE [Suspect]
     Dosage: UNK UKN, UNK

REACTIONS (1)
  - Completed suicide [Fatal]
